FAERS Safety Report 8170586-2 (Version None)
Quarter: 2012Q1

REPORT INFORMATION
  Report Type: 
  Country: None (occurrence: None)
  Receive Date: 20120204
  Receipt Date: 20111006
  Transmission Date: 20120608
  Serious: No
  Sender: FDA-Public Use
  Company Number: 2011HGS-002620

PATIENT
  Age: 50 Year
  Sex: Female
  Weight: 45.3597 kg

DRUGS (12)
  1. IMURAN [Concomitant]
  2. ALLEGRA [Concomitant]
  3. BENLYSTA [Suspect]
     Dosage: 10 MG/KG, 1 IN 28 D, INTRAVENOUS
     Route: 042
     Dates: start: 20110916, end: 20110916
  4. PREDNISONE TAB [Concomitant]
  5. FOLIC ACID [Concomitant]
  6. TOPAMAX [Concomitant]
  7. ZANTAC [Concomitant]
  8. EFFEXOR [Concomitant]
  9. MOBIC [Concomitant]
  10. PLAQUENIL [Concomitant]
  11. CALCIUM CARBONATE [Concomitant]
  12. HORMONE (HORMONES AND RELATED AGENTS) [Concomitant]

REACTIONS (2)
  - PRURITUS [None]
  - RASH MACULAR [None]
